FAERS Safety Report 7814494-2 (Version None)
Quarter: 2011Q4

REPORT INFORMATION
  Report Type: 
  Country: None (occurrence: None)
  Receive Date: 20111014
  Receipt Date: 20111014
  Transmission Date: 20120403
  Serious: Yes (Other)
  Sender: FDA-Public Use
  Company Number: PHHO2009US07031

PATIENT
  Sex: Female
  Weight: 83 kg

DRUGS (3)
  1. GILENYA [Suspect]
     Indication: RELAPSING-REMITTING MULTIPLE SCLEROSIS
     Dosage: 0.5 MG, UNK
     Route: 048
     Dates: start: 20080821, end: 20090603
  2. LEXAPRO [Concomitant]
  3. PROTONIX [Concomitant]

REACTIONS (8)
  - MACULAR OEDEMA [None]
  - IRIS ADHESIONS [None]
  - VISUAL ACUITY TESTS ABNORMAL [None]
  - RETINAL NEOVASCULARISATION [None]
  - EYE SWELLING [None]
  - VISION BLURRED [None]
  - HYPERTENSION [None]
  - HEADACHE [None]
